FAERS Safety Report 8380887-0 (Version None)
Quarter: 2012Q2

REPORT INFORMATION
  Report Type: 
  Country: None (occurrence: None)
  Receive Date: 20120523
  Receipt Date: 20120511
  Transmission Date: 20120825
  Serious: Yes (Hospitalization)
  Sender: FDA-Public Use
  Company Number: GB-MERCK-1205USA02282

PATIENT
  Age: 82 Year
  Sex: Male

DRUGS (4)
  1. SINEMET [Suspect]
     Route: 048
     Dates: start: 20120101
  2. SINEMET [Suspect]
     Indication: PARKINSON'S DISEASE
     Route: 048
     Dates: start: 20090101
  3. AZILECT [Suspect]
     Route: 065
     Dates: start: 20120101
  4. AZILECT [Suspect]
     Indication: PARKINSON'S DISEASE
     Route: 048
     Dates: start: 20090101

REACTIONS (4)
  - DEMENTIA WITH LEWY BODIES [None]
  - HALLUCINATION [None]
  - OFF LABEL USE [None]
  - PSYCHOTIC DISORDER [None]
